FAERS Safety Report 15518801 (Version 2)
Quarter: 2019Q4

REPORT INFORMATION
  Report Type: Spontaneous
  Country: US (occurrence: US)
  Receive Date: 20181017
  Receipt Date: 20191015
  Transmission Date: 20200122
  Serious: Yes (Other)
  Sender: FDA-Public Use
  Company Number: US-ELI_LILLY_AND_COMPANY-US201810006077

PATIENT
  Sex: Male

DRUGS (6)
  1. CIALIS [Suspect]
     Active Substance: TADALAFIL
     Dosage: 5 MG
     Route: 065
     Dates: start: 20110718, end: 20110818
  2. VIAGRA [Suspect]
     Active Substance: SILDENAFIL CITRATE
     Dosage: 50 MG
     Route: 065
     Dates: start: 20091228, end: 20101010
  3. VIAGRA [Suspect]
     Active Substance: SILDENAFIL CITRATE
     Indication: ERECTILE DYSFUNCTION
     Dosage: UNK UNK, UNKNOWN
     Route: 065
     Dates: start: 20040213, end: 20040313
  4. CIALIS [Suspect]
     Active Substance: TADALAFIL
     Dosage: 5 MG
     Route: 065
     Dates: start: 20110518, end: 20110531
  5. CIALIS [Suspect]
     Active Substance: TADALAFIL
     Dosage: 20 MG
     Route: 065
     Dates: start: 20081202, end: 20090213
  6. CIALIS [Suspect]
     Active Substance: TADALAFIL
     Indication: ERECTILE DYSFUNCTION
     Dosage: 20 MG, PRN
     Route: 065
     Dates: start: 20051115, end: 20051215

REACTIONS (1)
  - Malignant melanoma in situ [Unknown]

NARRATIVE: CASE EVENT DATE: 20040914
